FAERS Safety Report 14929169 (Version 1)
Quarter: 2018Q2

REPORT INFORMATION
  Report Type: Spontaneous
  Country: US (occurrence: US)
  Receive Date: 20180523
  Receipt Date: 20180523
  Transmission Date: 20180711
  Serious: No
  Sender: FDA-Public Use
  Company Number: US-TARO-2018TAR00033

PATIENT
  Age: 63 Year
  Sex: Female
  Weight: 84.35 kg

DRUGS (3)
  1. IMIQUIMOD CREAM 5% [Suspect]
     Active Substance: IMIQUIMOD
     Indication: ACTINIC KERATOSIS
     Dosage: 0.25 G (ONE PACKET), 3X/WEEK (M, W, F)
     Route: 061
     Dates: start: 20171208, end: 201801
  2. TEMAZEPAM. [Concomitant]
     Active Substance: TEMAZEPAM
     Dosage: 15 MG, 1X/DAY AT BEDTIME
  3. IMIQUIMOD CREAM 5% [Suspect]
     Active Substance: IMIQUIMOD
     Dosage: ^LESS THAN ONE WHOLE PACKET,^ UNK
     Route: 061
     Dates: start: 20180118

REACTIONS (7)
  - Haemorrhoidal haemorrhage [Recovered/Resolved]
  - Intentional product misuse [Recovered/Resolved]
  - Depressive symptom [Unknown]
  - Off label use [Not Recovered/Not Resolved]
  - Application site pain [Recovering/Resolving]
  - Application site inflammation [Recovering/Resolving]
  - Inappropriate schedule of drug administration [Unknown]

NARRATIVE: CASE EVENT DATE: 201712
